FAERS Safety Report 24113902 (Version 3)
Quarter: 2024Q3

REPORT INFORMATION
  Report Type: Spontaneous
  Country: BR (occurrence: BR)
  Receive Date: 20240720
  Receipt Date: 20240731
  Transmission Date: 20241017
  Serious: Yes (Other)
  Sender: CELLTRION
  Company Number: BR-CELLTRION INC.-2024BR017317

PATIENT

DRUGS (3)
  1. INFLIXIMAB [Suspect]
     Active Substance: INFLIXIMAB
     Indication: Rheumatoid arthritis
     Dosage: 3 AMPOULES EVERY 60 DAYS
     Route: 042
     Dates: start: 20230104
  2. INFLIXIMAB [Suspect]
     Active Substance: INFLIXIMAB
     Dosage: 3.75 AMPOULES EVERY 60 DAYS (WAS 3 AMPOULES EVERY 60 DAYS)
     Route: 042
     Dates: start: 20240704
  3. PRELONE [Concomitant]
     Active Substance: PREDNISOLONE
     Indication: Product used for unknown indication
     Route: 065

REACTIONS (6)
  - Colitis ulcerative [Unknown]
  - Symptom recurrence [Unknown]
  - Swelling [Unknown]
  - Pain [Unknown]
  - Intentional product use issue [Unknown]
  - Therapeutic response shortened [Unknown]
